FAERS Safety Report 5900351-5 (Version None)
Quarter: 2008Q3

REPORT INFORMATION
  Report Type: 
  Country: None (occurrence: None)
  Receive Date: 20080926
  Receipt Date: 20080922
  Transmission Date: 20090109
  Serious: Yes (Other)
  Sender: FDA-Public Use
  Company Number: US-BAYER-200811966BCC

PATIENT
  Age: 22 Year
  Sex: Female
  Weight: 75 kg

DRUGS (5)
  1. NEO-SYNEPHRINE 12 HOURS MOISTURIZING SPRAY [Suspect]
     Indication: NASAL CONGESTION
     Route: 045
     Dates: start: 19880101
  2. NEO-SYNEPHRINE 12 HOURS MOISTURIZING SPRAY [Suspect]
     Route: 045
     Dates: start: 19880101
  3. ADVIL [Concomitant]
  4. TYLENOL (CAPLET) [Concomitant]
  5. SYNTHROID [Concomitant]

REACTIONS (2)
  - CAESAREAN SECTION [None]
  - PREMATURE BABY [None]
